FAERS Safety Report 23874199 (Version 3)
Quarter: 2024Q2

REPORT INFORMATION
  Report Type: Spontaneous
  Country: JP (occurrence: JP)
  Receive Date: 20240520
  Receipt Date: 20240604
  Transmission Date: 20240716
  Serious: Yes (Other)
  Sender: FDA-Public Use
  Company Number: JP-UCBJ-CD202404310UCBPHAPROD

PATIENT
  Age: 6 Year
  Sex: Female

DRUGS (3)
  1. VIMPAT [Suspect]
     Active Substance: LACOSAMIDE
     Indication: Epilepsy
     Dosage: 100 MILLIGRAM, 2X/DAY (BID) (DRY SYRUP)
     Route: 048
     Dates: start: 202303
  2. LEVETIRACETAM [Concomitant]
     Active Substance: LEVETIRACETAM
     Indication: Epilepsy
     Dosage: 50 MILLIGRAM, 2X/DAY (BID)
     Route: 048
     Dates: start: 202308, end: 20240509
  3. VALPROATE SODIUM [Concomitant]
     Active Substance: VALPROATE SODIUM
     Indication: Epilepsy
     Dosage: 100 MILLIGRAM, 2X/DAY (BID), FGR
     Route: 048
     Dates: start: 202310

REACTIONS (2)
  - Erythema multiforme [Unknown]
  - Tremor [Unknown]

NARRATIVE: CASE EVENT DATE: 20240509
